FAERS Safety Report 22388981 (Version 1)
Quarter: 2023Q2

REPORT INFORMATION
  Report Type: Spontaneous
  Country: NO (occurrence: NO)
  Receive Date: 20230531
  Receipt Date: 20230531
  Transmission Date: 20230721
  Serious: Yes (Other)
  Sender: FDA-Public Use
  Company Number: None

PATIENT
  Age: 40 Year
  Sex: Female

DRUGS (4)
  1. YAZ [Suspect]
     Active Substance: DROSPIRENONE\ETHINYL ESTRADIOL
     Dosage: UNK
     Route: 048
     Dates: start: 201911, end: 202303
  2. CIPRALEX [Concomitant]
     Active Substance: ESCITALOPRAM OXALATE
     Indication: Premenstrual dysphoric disorder
     Dates: start: 201911
  3. MAGNESIUM [Concomitant]
     Active Substance: MAGNESIUM
  4. ZINC [Concomitant]
     Active Substance: ZINC

REACTIONS (8)
  - Abdominal pain [Recovered/Resolved]
  - Gastrointestinal pain [Recovered/Resolved]
  - Irritable bowel syndrome [Recovered/Resolved]
  - Pain [Unknown]
  - Malaise [Unknown]
  - Asthenia [Unknown]
  - Increased need for sleep [Unknown]
  - Muscle tightness [Unknown]

NARRATIVE: CASE EVENT DATE: 20200301
